FAERS Safety Report 5257115-8 (Version None)
Quarter: 2007Q1

REPORT INFORMATION
  Report Type: 
  Country: None (occurrence: None)
  Receive Date: 20070307
  Receipt Date: 20070302
  Transmission Date: 20070707
  Serious: Yes (Hospitalization)
  Sender: FDA-Public Use
  Company Number: US-BRISTOL-MYERS SQUIBB COMPANY-13699293

PATIENT
  Age: 55 Year
  Sex: Female
  Weight: 78 kg

DRUGS (3)
  1. CETUXIMAB [Suspect]
     Indication: TONSIL CANCER
     Route: 042
     Dates: start: 20070227
  2. CISPLATIN [Suspect]
     Indication: TONSIL CANCER
     Route: 042
     Dates: start: 20070220
  3. RADIATION THERAPY [Suspect]

REACTIONS (3)
  - DEHYDRATION [None]
  - MUCOSAL INFLAMMATION [None]
  - PAIN [None]
